FAERS Safety Report 17063138 (Version 1)
Quarter: 2019Q4

REPORT INFORMATION
  Report Type: Spontaneous
  Country: US (occurrence: US)
  Receive Date: 20191121
  Receipt Date: 20191121
  Transmission Date: 20200122
  Serious: Yes (Hospitalization)
  Sender: FDA-Public Use
  Company Number: None

PATIENT
  Age: 68 Year
  Sex: Female

DRUGS (10)
  1. HYDROCODONE [Concomitant]
     Active Substance: HYDROCODONE
  2. TIZANDINE [Concomitant]
     Active Substance: TIZANIDINE
  3. HUMIRA [Suspect]
     Active Substance: ADALIMUMAB
     Indication: RHEUMATOID ARTHRITIS
     Dosage: ?          OTHER FREQUENCY:EVERY OTHER WEEK;?
     Route: 058
     Dates: start: 20190208
  4. ROSUVASTATIN. [Concomitant]
     Active Substance: ROSUVASTATIN
  5. LEFLUNOMIDE. [Concomitant]
     Active Substance: LEFLUNOMIDE
  6. LOSARTAN. [Concomitant]
     Active Substance: LOSARTAN
  7. MAXIDEX [Concomitant]
     Active Substance: DEXAMETHASONE
  8. PREDNISONE. [Concomitant]
     Active Substance: PREDNISONE
  9. METHYLPRED [Concomitant]
     Active Substance: METHYLPREDNISOLONE
  10. PROMETHAZINE [Concomitant]
     Active Substance: PROMETHAZINE HYDROCHLORIDE

REACTIONS (2)
  - Spinal operation [None]
  - Therapy cessation [None]

NARRATIVE: CASE EVENT DATE: 20191112
